FAERS Safety Report 19399799 (Version 2)
Quarter: 2021Q2

REPORT INFORMATION
  Report Type: Report from Study
  Country: None (occurrence: AR)
  Receive Date: 20210610
  Receipt Date: 20210621
  Transmission Date: 20210717
  Serious: Yes (Other)
  Sender: FDA-Public Use
  Company Number: AR-ULTRAGENYX PHARMACEUTICAL INC.-AR-UGNX-21-00111

PATIENT
  Age: 14 Year
  Sex: Male

DRUGS (1)
  1. MEPSEVII [Suspect]
     Active Substance: VESTRONIDASE ALFA-VJBK
     Indication: PRODUCT USED FOR UNKNOWN INDICATION
     Dates: end: 202102

REACTIONS (2)
  - Cellulitis [Unknown]
  - Pneumonia [Unknown]

NARRATIVE: CASE EVENT DATE: 20210413
